FAERS Safety Report 4850865-4 (Version None)
Quarter: 2005Q4

REPORT INFORMATION
  Report Type: 
  Country: None (occurrence: None)
  Receive Date: 20051208
  Receipt Date: 20051019
  Transmission Date: 20060501
  Serious: Yes (Other)
  Sender: FDA-Public Use
  Company Number: 2005144720

PATIENT
  Sex: Female

DRUGS (3)
  1. MINOXIDIL [Suspect]
     Indication: ALOPECIA
     Dosage: ONE APPLICATION PER DAY IN THE MORNING, TOPICAL
     Route: 061
     Dates: end: 20050101
  2. ESTRADIOL [Concomitant]
  3. LORAZEPAM [Concomitant]

REACTIONS (5)
  - CATARACT OPERATION [None]
  - EYE PAIN [None]
  - HYPERSENSITIVITY [None]
  - OCULAR HYPERAEMIA [None]
  - VISUAL ACUITY REDUCED [None]
